FAERS Safety Report 4595680-4 (Version None)
Quarter: 2005Q1

REPORT INFORMATION
  Report Type: 
  Country: None (occurrence: None)
  Receive Date: 20050223
  Receipt Date: 20050223
  Transmission Date: 20050727
  Serious: Yes (Life-Threatening)
  Sender: FDA-Public Use
  Company Number: None

PATIENT
  Age: 70 Year
  Sex: Male
  Weight: 70.3075 kg

DRUGS (2)
  1. SULFASALAZINE [Suspect]
     Dosage: 1 GM BID
     Dates: start: 20040510, end: 20040823
  2. GABAPENTIN [Suspect]
     Dosage: 100 MG TID (PAIN)
     Dates: start: 20040713, end: 20040523

REACTIONS (2)
  - NEUTROPHIL COUNT DECREASED [None]
  - WHITE BLOOD CELL COUNT DECREASED [None]
